FAERS Safety Report 4961855-5 (Version None)
Quarter: 2006Q1

REPORT INFORMATION
  Report Type: 
  Country: None (occurrence: None)
  Receive Date: 20060329
  Receipt Date: 20060317
  Transmission Date: 20060701
  Serious: Yes (Other)
  Sender: FDA-Public Use
  Company Number: 2006038171

PATIENT
  Age: 50 Year
  Sex: Female
  Weight: 74.8435 kg

DRUGS (2)
  1. NEOSPORIN [Suspect]
     Indication: ANALGESIC EFFECT
     Dosage: 1 TINY SQUEEZE JUST ONCE, TOPICAL
     Route: 061
     Dates: start: 20060316, end: 20060316
  2. MULTIVITAMINS, COMBINATIONS [Concomitant]

REACTIONS (9)
  - APPLICATION SITE BLEEDING [None]
  - BLOOD PRESSURE DECREASED [None]
  - FEELING ABNORMAL [None]
  - NAUSEA [None]
  - PALPITATIONS [None]
  - PAROSMIA [None]
  - PHARMACEUTICAL PRODUCT COMPLAINT [None]
  - SYNCOPE [None]
  - WOUND HAEMORRHAGE [None]
